FAERS Safety Report 8186149-9 (Version None)
Quarter: 2012Q1

REPORT INFORMATION
  Report Type: 
  Country: None (occurrence: None)
  Receive Date: 20120306
  Receipt Date: 20120301
  Transmission Date: 20120608
  Serious: No
  Sender: FDA-Public Use
  Company Number: US-PFIZER INC-2012055947

PATIENT
  Sex: Male
  Weight: 70.3 kg

DRUGS (1)
  1. PREMARIN [Suspect]
     Dosage: UNK
     Route: 050

REACTIONS (2)
  - ERECTILE DYSFUNCTION [None]
  - EXPOSURE VIA PARTNER [None]
